FAERS Safety Report 15324186 (Version 4)
Quarter: 2018Q4

REPORT INFORMATION
  Report Type: Spontaneous
  Country: US (occurrence: US)
  Receive Date: 20180828
  Receipt Date: 20181102
  Transmission Date: 20190204
  Serious: Yes (Death, Other)
  Sender: FDA-Public Use
  Company Number: US-HORIZON-ACT-0265-2018

PATIENT
  Age: 80 Year
  Sex: Male

DRUGS (4)
  1. METOCLOPRAMIDE. [Concomitant]
     Active Substance: METOCLOPRAMIDE
  2. MELOXICAM. [Concomitant]
     Active Substance: MELOXICAM
  3. ACTIMMUNE [Suspect]
     Active Substance: INTERFERON GAMMA-1B
     Indication: CHRONIC GRANULOMATOUS DISEASE
     Dosage: 100 ?G TIW
     Route: 058
  4. MEGESTROL [Concomitant]
     Active Substance: MEGESTROL

REACTIONS (2)
  - Coronary artery bypass [Unknown]
  - Pneumonia aspiration [Fatal]
